FAERS Safety Report 17321884 (Version 1)
Quarter: 2020Q1

REPORT INFORMATION
  Report Type: Other
  Country: US (occurrence: US)
  Receive Date: 20200127
  Receipt Date: 20200127
  Transmission Date: 20200409
  Serious: No
  Sender: FDA-Public Use
  Company Number: US-ACORDA-ACO_159642_2019

PATIENT
  Age: 62 Year
  Sex: Female

DRUGS (3)
  1. TYSABRI [Suspect]
     Active Substance: NATALIZUMAB
     Indication: RELAPSING-REMITTING MULTIPLE SCLEROSIS
     Dosage: 1 IN 4 WEEKS, INFUSED OVER 1 HOUR
     Route: 042
  2. AMPYRA [Suspect]
     Active Substance: DALFAMPRIDINE
     Indication: PRODUCT USED FOR UNKNOWN INDICATION
     Dosage: APPROXIMATELY 12 HOURS APART, TAKEN WITH OR WITHOUT FOOD
     Route: 048
  3. BACLOFEN. [Concomitant]
     Active Substance: BACLOFEN
     Indication: PRODUCT USED FOR UNKNOWN INDICATION
     Dosage: 10 MILLIGRAM, TID
     Route: 065

REACTIONS (5)
  - Muscle spasticity [Unknown]
  - Protein total decreased [Unknown]
  - Musculoskeletal stiffness [Unknown]
  - Blood urea nitrogen/creatinine ratio increased [Unknown]
  - Fall [Unknown]

NARRATIVE: CASE EVENT DATE: 20190326
